FAERS Safety Report 18336122 (Version 2)
Quarter: 2020Q4

REPORT INFORMATION
  Report Type: Report from Study
  Country: FI (occurrence: FI)
  Receive Date: 20201001
  Receipt Date: 20201119
  Transmission Date: 20210113
  Serious: Yes (Hospitalization, Other)
  Sender: FDA-Public Use
  Company Number: FI-MYLANLABS-2020M1082819

PATIENT
  Age: 58 Year
  Sex: Female

DRUGS (16)
  1. TEMESTA                            /00273201/ [Concomitant]
     Active Substance: LORAZEPAM
     Dosage: 1 MILLIGRAM, TID
  2. GABAPENTIN ACCORD [Concomitant]
     Active Substance: GABAPENTIN
     Dosage: 300 MILLIGRAM, QD
     Dates: start: 20200924
  3. BISOPROLOL [Concomitant]
     Active Substance: BISOPROLOL
     Dosage: 2.45 MILLIGRAM, QD
  4. SIMVASTATIN. [Concomitant]
     Active Substance: SIMVASTATIN
     Dosage: 10 MILLIGRAM, QD
  5. LEPONEX [Suspect]
     Active Substance: CLOZAPINE
     Dosage: 400 MILLIGRAM, QD (100+300 MG)
     Dates: start: 20200920, end: 20200922
  6. LEPONEX [Suspect]
     Active Substance: CLOZAPINE
     Dosage: 250 MILLIGRAM, QD
     Dates: start: 20200922, end: 20200922
  7. KALEORID [Concomitant]
     Active Substance: POTASSIUM CHLORIDE
     Dosage: 1 GRAM, BID
  8. THYROXIN [Concomitant]
     Active Substance: LEVOTHYROXINE
     Dosage: 6 DOSAGE FORM, QW
  9. BAKLOFEN [Concomitant]
     Active Substance: BACLOFEN
     Dosage: 1 DOSAGE FORM, TID
  10. LEPONEX [Suspect]
     Active Substance: CLOZAPINE
     Dosage: INCREASE UP TO 400 MG
     Dates: start: 202009, end: 20200923
  11. LEPONEX [Suspect]
     Active Substance: CLOZAPINE
     Dosage: 350 MILLIGRAM, QD (100+250 MG)
     Dates: start: 20200916, end: 20200920
  12. ABSENOR                            /00228501/ [Concomitant]
     Dosage: 600 MILLIGRAM, QD
     Dates: start: 20200924
  13. LEPONEX [Suspect]
     Active Substance: CLOZAPINE
     Indication: DELUSIONAL DISORDER, UNSPECIFIED TYPE
     Dosage: UNK
     Dates: start: 202008, end: 202009
  14. LEPONEX [Suspect]
     Active Substance: CLOZAPINE
     Dosage: 300 MILLIGRAM, QD (50+250 MG)
     Dates: start: 20200909, end: 20200916
  15. CALOGEN                            /00371903/ [Concomitant]
     Dosage: 30 MILLILITER, TID
  16. HYDROCORTISONE. [Concomitant]
     Active Substance: HYDROCORTISONE
     Dosage: 1.5 DOSAGE FORM, QD (1+0.5)

REACTIONS (5)
  - C-reactive protein increased [Recovered/Resolved]
  - Off label use [Unknown]
  - Neutrophil count decreased [Recovered/Resolved]
  - White blood cell count decreased [Recovered/Resolved]
  - Agranulocytosis [Recovered/Resolved]

NARRATIVE: CASE EVENT DATE: 2020
